FAERS Safety Report 5811799-1 (Version None)
Quarter: 2008Q3

REPORT INFORMATION
  Report Type: 
  Country: None (occurrence: None)
  Receive Date: 20080714
  Receipt Date: 20080708
  Transmission Date: 20090109
  Serious: Yes (Hospitalization)
  Sender: FDA-Public Use
  Company Number: 2008SP013938

PATIENT
  Age: 69 Year
  Sex: Male
  Weight: 70 kg

DRUGS (2)
  1. TEMODAL [Suspect]
     Indication: LYMPHOMA
     Dosage: 150 MG; QD; PO
     Route: 048
     Dates: start: 20080624, end: 20080628
  2. METHOTREXATE [Suspect]
     Indication: LYMPHOMA
     Dosage: 3.5 GM; QD; IV
     Route: 042
     Dates: start: 20080624, end: 20080624

REACTIONS (1)
  - RENAL FAILURE [None]
